FAERS Safety Report 14991957 (Version 1)
Quarter: 2018Q2

REPORT INFORMATION
  Report Type: Spontaneous
  Country: DE (occurrence: DE)
  Receive Date: 20180608
  Receipt Date: 20180608
  Transmission Date: 20180711
  Serious: Yes (Hospitalization)
  Sender: FDA-Public Use
  Company Number: DE-TEVA-2018-DE-903757

PATIENT
  Age: 81 Year
  Sex: Male
  Weight: 94 kg

DRUGS (14)
  1. PREDNISOLONE. [Concomitant]
     Active Substance: PREDNISOLONE
     Dosage: 10 MILLIGRAM DAILY; 10 MG, 1-0-0-0, TABLET
     Route: 048
  2. TORASEMID [Suspect]
     Active Substance: TORSEMIDE
     Dosage: 50 MILLIGRAM DAILY; 50 MG, 1-0-0-0, TABLETS
     Route: 048
  3. RANOLAZINE. [Concomitant]
     Active Substance: RANOLAZINE
     Dosage: 375 MG, 1-0-1-0, TABLETS
     Route: 048
  4. SIMVASTATIN. [Concomitant]
     Active Substance: SIMVASTATIN
     Dosage: 10 MILLIGRAM DAILY; 20 MG, 0-0-0.5-0, TABLETS
     Route: 048
  5. METOPROLOL. [Concomitant]
     Active Substance: METOPROLOL
     Dosage: 95 MILLIGRAM DAILY; 95 MG, 1-0-0-0, TABLETTES
     Route: 048
  6. PREGABALIN. [Concomitant]
     Active Substance: PREGABALIN
     Dosage: 300 MILLIGRAM DAILY; 300 MG, 0-0-1-0, TABLETTES
     Route: 048
  7. CLOPIDOGREL [Concomitant]
     Active Substance: CLOPIDOGREL BISULFATE
     Dosage: 75 MILLIGRAM DAILY; 75 MG, 1-0-0-0, TABLETTES
     Route: 048
  8. MOLSIDOMINE [Concomitant]
     Active Substance: MOLSIDOMINE
     Dosage: 4 MG, 1-0-1-0, TABLETTES
     Route: 048
  9. PRAMIPEXOLE. [Concomitant]
     Active Substance: PRAMIPEXOLE
     Dosage: .25 MILLIGRAM DAILY; 0.52 MG, 0-1-0-0, TABLETTEN
     Route: 048
  10. DUTASTERIDE, TAMSULOSIN [Concomitant]
     Dosage: 1 DOSAGE FORMS DAILY; 0.4/0.5 MG, 1-0-0-0, TABLETTES
     Route: 048
  11. PANTOPRAZOL [Concomitant]
     Active Substance: PANTOPRAZOLE SODIUM
     Dosage: 40 MG, 1-0-1-0, TABLETTES
     Route: 048
  12. RAMIPRIL. [Concomitant]
     Active Substance: RAMIPRIL
     Dosage: 5 MG, 1-0-1-0, TABLETS
     Route: 048
  13. RIVAROXABAN [Concomitant]
     Active Substance: RIVAROXABAN
     Dosage: 15 MILLIGRAM DAILY; 15 MG, 1-0-0-0, TABLETTES
     Route: 048
  14. AMLODIPINE [Concomitant]
     Active Substance: AMLODIPINE BESYLATE
     Dosage: 10 MILLIGRAM DAILY; 10 MG, 0-1-0-0, TABLETTEN
     Route: 048

REACTIONS (5)
  - Dyspnoea [Unknown]
  - General physical health deterioration [Unknown]
  - Acute kidney injury [Unknown]
  - Dizziness [Unknown]
  - Fatigue [Unknown]
